FAERS Safety Report 25961359 (Version 2)
Quarter: 2025Q4

REPORT INFORMATION
  Report Type: Spontaneous
  Country: GB (occurrence: GB)
  Receive Date: 20251027
  Receipt Date: 20251030
  Transmission Date: 20260118
  Serious: Yes (Other)
  Sender: ABBVIE
  Company Number: GB-MHRA-TPP31014332C11813008YC1761046675387

PATIENT
  Age: 76 Year
  Sex: Male
  Weight: 87 kg

DRUGS (6)
  1. ATOGEPANT [Suspect]
     Active Substance: ATOGEPANT
     Indication: Product used for unknown indication
     Dosage: 60MG TABLETS?TAKE 1 TABLET ONCE A DAY FOR EPISODIC AND CHRO...
     Route: 048
     Dates: start: 20250925
  2. 3M CAVILON ANTIFUNGAL [Concomitant]
     Active Substance: MICONAZOLE NITRATE
     Indication: Ill-defined disorder
     Dosage: USE AS DIRECTED
     Dates: start: 20250813, end: 20250910
  3. NEFOPAM [Concomitant]
     Active Substance: NEFOPAM
     Indication: Ill-defined disorder
     Dosage: TAKE ONE 3 TIMES/DAY
     Dates: start: 20250610
  4. ACETAMINOPHEN [Concomitant]
     Active Substance: ACETAMINOPHEN
     Indication: Ill-defined disorder
     Dosage: TWO TABLETS TO BE TAKEN FOUR TIMES DAILY
     Dates: start: 20250610
  5. MORPHINE SULFATE [Concomitant]
     Active Substance: MORPHINE SULFATE
     Indication: Ill-defined disorder
     Dosage: TAKE ONE EVERY 12 HOURS
     Dates: start: 20250610
  6. SUMATRIPTAN [Concomitant]
     Active Substance: SUMATRIPTAN
     Indication: Ill-defined disorder
     Dosage: TAKE 1 TABLET AS DIRECTED, A SECOND DOSE CAN BE...
     Dates: start: 20250925

REACTIONS (3)
  - Malaise [Recovering/Resolving]
  - Decreased appetite [Recovering/Resolving]
  - Constipation [Recovering/Resolving]
